FAERS Safety Report 24938580 (Version 1)
Quarter: 2025Q1

REPORT INFORMATION
  Report Type: Spontaneous
  Country: US (occurrence: None)
  Receive Date: 20250206
  Receipt Date: 20250206
  Transmission Date: 20250409
  Serious: No
  Sender: FDA-CTU
  Company Number: None

PATIENT
  Age: 7 Day
  Sex: Male
  Weight: 4.91 kg

DRUGS (2)
  1. BEYFORTUS [Suspect]
     Active Substance: NIRSEVIMAB-ALIP
  2. Vitamin D drops [Concomitant]
     Dates: start: 20241214

REACTIONS (2)
  - Injection site rash [None]
  - Rash maculo-papular [None]

NARRATIVE: CASE EVENT DATE: 20241219
